FAERS Safety Report 15274074 (Version 1)
Quarter: 2018Q3

REPORT INFORMATION
  Report Type: Report from Study
  Country: SE (occurrence: SE)
  Receive Date: 20180814
  Receipt Date: 20180814
  Transmission Date: 20181010
  Serious: Yes (Life-Threatening, Hospitalization)
  Sender: FDA-Public Use
  Company Number: SE-TEVA-2018-SE-939866

PATIENT
  Age: 69 Year
  Sex: Male
  Weight: 90 kg

DRUGS (11)
  1. EVEROLIMUS. [Suspect]
     Active Substance: EVEROLIMUS
     Indication: RENAL TRANSPLANT
     Dosage: UNK
     Route: 048
     Dates: start: 20161115
  2. PREDNISOLONE. [Suspect]
     Active Substance: PREDNISOLONE
     Dosage: 5 MG ,UNK
     Route: 048
     Dates: start: 20160821
  3. MYFORTIC [Suspect]
     Active Substance: MYCOPHENOLATE SODIUM
     Indication: RENAL TRANSPLANT
     Dosage: 540 MG (360 + 180 MG)
     Route: 065
     Dates: start: 20150827, end: 20151223
  4. ADPORT [Suspect]
     Active Substance: TACROLIMUS
     Indication: RENAL TRANSPLANT
     Dosage: 5 MILLIGRAM DAILY; 2.5 MG, BID
     Route: 065
     Dates: start: 20150827, end: 20160118
  5. ADPORT [Suspect]
     Active Substance: TACROLIMUS
     Dosage: 2 MILLIGRAM DAILY; 1 MG, BID
     Route: 065
     Dates: end: 20160307
  6. PREDNISOLONE. [Suspect]
     Active Substance: PREDNISOLONE
     Indication: RENAL TRANSPLANT
     Dosage: 7.5 MILLIGRAM DAILY; 7.5 MG, QD
     Route: 048
     Dates: start: 20160311
  7. PREDNISOLONE. [Suspect]
     Active Substance: PREDNISOLONE
     Dosage: 7.5 MILLIGRAM DAILY; 7.5 MG,QD
     Route: 048
     Dates: start: 20160821
  8. PREDNISOLONE. [Suspect]
     Active Substance: PREDNISOLONE
     Dosage: 5 MILLIGRAM DAILY; 5 MG, QD
     Route: 048
     Dates: end: 20160307
  9. EVEROLIMUS. [Suspect]
     Active Substance: EVEROLIMUS
     Dosage: 1 MG, BID
     Route: 048
     Dates: start: 20160829, end: 20161108
  10. ADPORT [Suspect]
     Active Substance: TACROLIMUS
     Dosage: 3 MILLIGRAM DAILY; 1.5 MG, BID
     Route: 065
     Dates: end: 20160503
  11. ADPORT [Suspect]
     Active Substance: TACROLIMUS
     Dosage: 3 MILLIGRAM DAILY; 1.5 MG, BID
     Route: 065
     Dates: start: 20160821

REACTIONS (4)
  - Thrombocytopenia [Recovered/Resolved]
  - Pneumonia [Recovered/Resolved]
  - Pneumonia [Recovered/Resolved]
  - Kaposi^s sarcoma [Recovered/Resolved]

NARRATIVE: CASE EVENT DATE: 20160307
